FAERS Safety Report 12171372 (Version 16)
Quarter: 2019Q3

REPORT INFORMATION
  Report Type: Spontaneous
  Country: US (occurrence: US)
  Receive Date: 20160311
  Receipt Date: 20190717
  Transmission Date: 20191004
  Serious: Yes (Other)
  Sender: FDA-Public Use
  Company Number: US-PFIZER INC-2014067068

PATIENT
  Age: 65 Year
  Sex: Female
  Weight: 110 kg

DRUGS (27)
  1. LYRICA [Suspect]
     Active Substance: PREGABALIN
     Indication: NEUROPATHY PERIPHERAL
  2. KLONOPIN [Concomitant]
     Active Substance: CLONAZEPAM
     Dosage: 0.5 MG, UNK
  3. OXYBUTYNIN. [Concomitant]
     Active Substance: OXYBUTYNIN CHLORIDE
     Dosage: 5 MG, UNK
  4. VOLTAREN [Concomitant]
     Active Substance: DICLOFENAC SODIUM
     Dosage: 50 MG, UNK
  5. ROXICODONE [Concomitant]
     Active Substance: OXYCODONE HYDROCHLORIDE
     Dosage: 5 MG, UNK
  6. OXYCODONE [Concomitant]
     Active Substance: OXYCODONE
     Indication: NEUROPATHY PERIPHERAL
     Dosage: UNK, 3X/DAY (2 TABS TID)
     Dates: start: 2004
  7. LIDOCAINE W/PRILOCAINE [Concomitant]
     Active Substance: LIDOCAINE\PRILOCAINE
     Dosage: UNK, 4X/DAY [LIDOCAINE: 2.5 %, PRILOCAINE: 2.5 %] 4 TIMES DAILY/ RUB IN WELL (30 GM TUBE)
     Route: 061
     Dates: start: 20120703
  8. MYCOSTATIN [Concomitant]
     Active Substance: NYSTATIN
     Dosage: UNK (100000 IU/ML)
  9. LYRICA [Suspect]
     Active Substance: PREGABALIN
     Indication: FIBROMYALGIA
     Dosage: 400 MG, DAILY (1 IN THE MORNING, 1 IN THE AFTERNOON, 1 IN THE LATER AFTERNOON, THEN 1 BEFORE BED)
     Route: 048
  10. OXYCODONE [Concomitant]
     Active Substance: OXYCODONE
     Indication: FIBROMYALGIA
     Dosage: 30 MG, DAILY
     Route: 048
  11. ZOLPIDEM [Concomitant]
     Active Substance: ZOLPIDEM TARTRATE
     Dosage: UNK, MONTHLY  (1 OR 2, 5MG MONTHLY)
  12. PRILOCAINE [Concomitant]
     Active Substance: PRILOCAINE
     Dosage: UNK
  13. PREMARIN [Concomitant]
     Active Substance: ESTROGENS, CONJUGATED
     Dosage: 0.625 G, DAILY (APPLY PEA SIZED AMOUNT TO URETHRAL/ VAGINAL AREA ONCE A DAY) (30 GM TUBE)
     Route: 067
     Dates: start: 20150716
  14. DITROPAN XL [Concomitant]
     Active Substance: OXYBUTYNIN CHLORIDE
     Dosage: UNK (24 HR)
  15. CLONAZEPAM. [Concomitant]
     Active Substance: CLONAZEPAM
     Indication: NEURALGIA
     Dosage: 0.5 MG, AS NEEDED (PLACE 1 TABLET ON TONGUE AND ALLOW TO DISSOLVE 2-3 TIMES PRN)
     Route: 060
  16. LYRICA [Suspect]
     Active Substance: PREGABALIN
     Indication: MONONEUROPATHY
     Dosage: 100 MG, 4X/DAY
     Route: 048
  17. VOLTAREN [Concomitant]
     Active Substance: DICLOFENAC SODIUM
     Indication: ARTHRALGIA
     Dosage: 1 %, UNK
  18. AMBIEN [Concomitant]
     Active Substance: ZOLPIDEM TARTRATE
     Dosage: 10 MG, UNK
  19. DICLOFENAC [Concomitant]
     Active Substance: DICLOFENAC
     Indication: PAIN
     Dosage: 50 MG, AS NEEDED
     Route: 048
  20. LYRICA [Suspect]
     Active Substance: PREGABALIN
     Indication: PAIN
  21. LIDOCAINE HCL [Concomitant]
     Active Substance: LIDOCAINE HYDROCHLORIDE
     Dosage: 1 %, UNK
     Route: 061
  22. CATAFLAM [Concomitant]
     Active Substance: DICLOFENAC POTASSIUM
     Dosage: 50 MG, UNK
  23. OXYIR [Concomitant]
     Active Substance: OXYCODONE HYDROCHLORIDE
     Dosage: 5  MG, UNK
  24. ZOLPIDEM TARTRATE. [Concomitant]
     Active Substance: ZOLPIDEM TARTRATE
     Indication: SLEEP DISORDER
     Dosage: 0.5 MG, AS NEEDED (TAKE 0.5 TABLETS) (NIGHTLY)
     Route: 048
  25. OXYCODONE HCL/ OXYCODON TER/ASA [Concomitant]
     Active Substance: ASPIRIN\OXYCODONE HYDROCHLORIDE\OXYCODONE TEREPHTHALATE
     Dosage: UNK
     Route: 048
  26. CLONAZEPAM. [Concomitant]
     Active Substance: CLONAZEPAM
     Dosage: 0.5 MG, AS NEEDED (2-3 TIMES AS NEEDED)
     Route: 060
  27. LYRICA [Suspect]
     Active Substance: PREGABALIN
     Indication: DIABETIC NEUROPATHY
     Dosage: 100 MG, 4X/DAY
     Route: 048
     Dates: start: 2007

REACTIONS (10)
  - Rotator cuff syndrome [Unknown]
  - Product use issue [Unknown]
  - Fall [Recovering/Resolving]
  - Burning mouth syndrome [Unknown]
  - Tooth disorder [Recovered/Resolved]
  - Off label use [Unknown]
  - Balance disorder [Unknown]
  - Dry eye [Unknown]
  - Neuropathy peripheral [Not Recovered/Not Resolved]
  - Muscular weakness [Unknown]

NARRATIVE: CASE EVENT DATE: 201602
